FAERS Safety Report 15115921 (Version 1)
Quarter: 2018Q3

REPORT INFORMATION
  Report Type: Spontaneous
  Country: BR (occurrence: BR)
  Receive Date: 20180706
  Receipt Date: 20180706
  Transmission Date: 20181010
  Serious: Yes (Hospitalization)
  Sender: FDA-Public Use
  Company Number: BR-GLAXOSMITHKLINE-BR2018GSK117353

PATIENT
  Age: 3 Year
  Sex: Male
  Weight: 7 kg

DRUGS (10)
  1. AEROLIN [Suspect]
     Active Substance: ALBUTEROL
     Indication: ASTHMA
     Dosage: 3 PUFF(S), TID
     Route: 055
  2. PREDSIM [Suspect]
     Active Substance: PREDNISOLONE
     Indication: ASTHMATIC CRISIS
     Dosage: 6 UNK, QD
     Route: 048
  3. BRONCHO VAXOM [Concomitant]
     Indication: HYPERSENSITIVITY
     Dosage: 1 DF, QD(SACHET)
     Route: 048
     Dates: start: 20180528
  4. ALLEGRA [Suspect]
     Active Substance: FEXOFENADINE HYDROCHLORIDE
     Indication: HYPERSENSITIVITY
     Dosage: 3.5 ML, BID
     Route: 048
  5. SERETIDE [Suspect]
     Active Substance: FLUTICASONE PROPIONATE\SALMETEROL XINAFOATE
     Indication: ASTHMA
     Dosage: 1 PUFF(S), QD
     Route: 055
  6. FLIXOTIDE (CFC?FREE) [Suspect]
     Active Substance: FLUTICASONE PROPIONATE
     Indication: BRONCHITIS
  7. NASONEX [Suspect]
     Active Substance: MOMETASONE FUROATE
     Indication: ALLERGIC RESPIRATORY DISEASE
     Dosage: 1 PUFF(S), BID
     Route: 055
     Dates: start: 201703
  8. FLIXOTIDE (CFC?FREE) [Suspect]
     Active Substance: FLUTICASONE PROPIONATE
     Indication: ASTHMA
     Dosage: 1 PUFF(S), QD
     Route: 055
  9. AEROLIN [Suspect]
     Active Substance: ALBUTEROL
     Indication: BRONCHITIS
  10. SERETIDE [Suspect]
     Active Substance: FLUTICASONE PROPIONATE\SALMETEROL XINAFOATE
     Indication: BRONCHITIS

REACTIONS (7)
  - Overdose [Unknown]
  - Contraindicated drug prescribed [Unknown]
  - Peau d^orange [Recovered/Resolved]
  - Product use issue [Unknown]
  - Product prescribing issue [Recovered/Resolved]
  - Drug administered to patient of inappropriate age [Recovered/Resolved]
  - Off label use [Recovered/Resolved]

NARRATIVE: CASE EVENT DATE: 20180503
